FAERS Safety Report 13539251 (Version 1)
Quarter: 2017Q2

REPORT INFORMATION
  Report Type: Spontaneous
  Country: US (occurrence: US)
  Receive Date: 20170511
  Receipt Date: 20170511
  Transmission Date: 20170830
  Serious: No
  Sender: FDA-Public Use
  Company Number: None

PATIENT
  Age: 63 Year
  Sex: Male
  Weight: 66.6 kg

DRUGS (1)
  1. DOCUSATE SODIUM LIQUID [Suspect]
     Active Substance: DOCUSATE SODIUM
     Indication: FUNCTIONAL GASTROINTESTINAL DISORDER
     Route: 048
     Dates: start: 20170427, end: 20170502

REACTIONS (2)
  - Burkholderia test positive [None]
  - Culture positive [None]
